FAERS Safety Report 25010366 (Version 1)
Quarter: 2025Q1

REPORT INFORMATION
  Report Type: Spontaneous
  Country: CN (occurrence: CN)
  Receive Date: 20250225
  Receipt Date: 20250225
  Transmission Date: 20250408
  Serious: Yes (Other)
  Sender: MYLAN
  Company Number: CN-MYLANLABS-2025M1015563

PATIENT
  Age: 68 Year
  Sex: Male
  Weight: 75 kg

DRUGS (3)
  1. AMLODIPINE [Suspect]
     Active Substance: AMLODIPINE BESYLATE
     Indication: Hypertension
  2. AXITINIB [Concomitant]
     Active Substance: AXITINIB
  3. TORIPALIMAB [Concomitant]
     Active Substance: TORIPALIMAB

REACTIONS (1)
  - Blood pressure increased [Recovering/Resolving]

NARRATIVE: CASE EVENT DATE: 20241122
